FAERS Safety Report 14424348 (Version 1)
Quarter: 2018Q1

REPORT INFORMATION
  Report Type: Spontaneous
  Country: GB (occurrence: GB)
  Receive Date: 20180123
  Receipt Date: 20180123
  Transmission Date: 20180509
  Serious: Yes (Disabling)
  Sender: FDA-Public Use
  Company Number: GB-JNJFOC-20180122550

PATIENT
  Age: 66 Year
  Sex: Female

DRUGS (8)
  1. AMITRIPTYLINE [Concomitant]
     Active Substance: AMITRIPTYLINE
     Dosage: NOCTE
     Route: 065
  2. FUROSEMIDE. [Concomitant]
     Active Substance: FUROSEMIDE
     Route: 065
  3. INSULIN [Concomitant]
     Active Substance: INSULIN NOS
     Route: 065
  4. CLOPIDOGREL HYDROGEN SULFATE [Concomitant]
     Active Substance: CLOPIDOGREL BISULFATE
     Route: 065
  5. FOLIC ACID. [Concomitant]
     Active Substance: FOLIC ACID
     Route: 065
  6. METHOTREXATE. [Concomitant]
     Active Substance: METHOTREXATE
     Indication: RHEUMATOID ARTHRITIS
     Route: 065
  7. ZOMORPH [Concomitant]
     Active Substance: MORPHINE SULFATE
     Route: 065
  8. GOLIMUMAB [Suspect]
     Active Substance: GOLIMUMAB
     Indication: RHEUMATOID ARTHRITIS
     Dosage: CUMULATIVE DOSE TO FIRST REACTION(NO.) 173.33333 MILLIGRAM
     Route: 058
     Dates: start: 20160419, end: 20170221

REACTIONS (6)
  - Dysarthria [Not Recovered/Not Resolved]
  - Facial paralysis [Unknown]
  - Microangiopathy [Unknown]
  - Dysphagia [Recovering/Resolving]
  - Slow speech [Not Recovered/Not Resolved]
  - Drooling [Recovering/Resolving]

NARRATIVE: CASE EVENT DATE: 201608
